FAERS Safety Report 6376519-3 (Version None)
Quarter: 2009Q3

REPORT INFORMATION
  Report Type: 
  Country: None (occurrence: None)
  Receive Date: 20090922
  Receipt Date: 20090922
  Transmission Date: 20100115
  Serious: Yes (Life-Threatening, Hospitalization)
  Sender: FDA-Public Use
  Company Number: None

PATIENT
  Age: 32 Year
  Sex: Female
  Weight: 62.1428 kg

DRUGS (1)
  1. VIMPAT [Suspect]
     Indication: CONVULSION
     Dosage: 100 MG 2 PO
     Route: 048
     Dates: start: 20090703, end: 20090814

REACTIONS (3)
  - COMMUNICATION DISORDER [None]
  - CONVULSION [None]
  - GRAND MAL CONVULSION [None]
